FAERS Safety Report 24178729 (Version 2)
Quarter: 2024Q3

REPORT INFORMATION
  Report Type: Spontaneous
  Country: US (occurrence: US)
  Receive Date: 20240806
  Receipt Date: 20240816
  Transmission Date: 20241016
  Serious: Yes (Hospitalization, Other)
  Sender: AUROBINDO
  Company Number: US-MLMSERVICE-20240718-PI136477-00057-1

PATIENT
  Age: 71 Year
  Sex: Male

DRUGS (5)
  1. ATORVASTATIN [Interacting]
     Active Substance: ATORVASTATIN
     Indication: Hyperlipidaemia
     Dosage: 40 MILLIGRAM, ONCE A DAY (LONG-TERM/HIGH-INTENSITY)
     Route: 065
  2. HERBALS\TRIBULUS TERRESTRIS [Interacting]
     Active Substance: HERBALS\TRIBULUS TERRESTRIS
     Indication: Supplementation therapy
     Dosage: 500 MILLIGRAM, ONCE A DAY
     Route: 065
  3. ASPIRIN [Concomitant]
     Active Substance: ASPIRIN
     Indication: Product used for unknown indication
     Dosage: 81 MILLIGRAM, ONCE A DAY
     Route: 065
  4. METOPROLOL SUCCINATE [Concomitant]
     Active Substance: METOPROLOL SUCCINATE
     Indication: Product used for unknown indication
     Dosage: 100 MILLIGRAM, ONCE A DAY
     Route: 065
  5. SODIUM BICARBONATE [Concomitant]
     Active Substance: SODIUM BICARBONATE
     Indication: Product used for unknown indication
     Dosage: UNK
     Route: 041

REACTIONS (6)
  - Rhabdomyolysis [Recovered/Resolved]
  - Chest pain [Recovered/Resolved]
  - Hypertransaminasaemia [Recovered/Resolved]
  - Myalgia [Recovered/Resolved]
  - Herbal interaction [Recovered/Resolved]
  - Drug interaction [Recovered/Resolved]
